FAERS Safety Report 10018978 (Version 2)
Quarter: 2014Q1

REPORT INFORMATION
  Report Type: Spontaneous
  Country: GB (occurrence: GB)
  Receive Date: 20140318
  Receipt Date: 20140331
  Transmission Date: 20141002
  Serious: Yes (Other)
  Sender: FDA-Public Use
  Company Number: GB-GLAXOSMITHKLINE-B0975427A

PATIENT
  Age: 70 Year
  Sex: Female

DRUGS (2)
  1. ROPINIROLE [Suspect]
     Indication: PRODUCT USED FOR UNKNOWN INDICATION
     Route: 065
  2. MADOPAR [Suspect]
     Indication: PARKINSON^S DISEASE
     Route: 065

REACTIONS (8)
  - Dementia [Unknown]
  - Psychotic disorder [Unknown]
  - On and off phenomenon [Unknown]
  - Dopamine dysregulation syndrome [Unknown]
  - Anxiety [Unknown]
  - Hallucination [Unknown]
  - Paranoia [Unknown]
  - Social problem [Unknown]
